FAERS Safety Report 7592639-X (Version None)
Quarter: 2011Q3

REPORT INFORMATION
  Report Type: 
  Country: None (occurrence: None)
  Receive Date: 20110706
  Receipt Date: 20110629
  Transmission Date: 20111222
  Serious: Yes (Hospitalization)
  Sender: FDA-Public Use
  Company Number: JP-PFIZER INC-2011145881

PATIENT
  Age: 65 Year
  Sex: Male

DRUGS (2)
  1. THYRADIN [Concomitant]
  2. SUTENT [Suspect]
     Dosage: 50 MG, 1X/DAY
     Route: 048
     Dates: start: 20110330, end: 20110627

REACTIONS (1)
  - THYROIDITIS [None]
